FAERS Safety Report 12234047 (Version 1)
Quarter: 2016Q2

REPORT INFORMATION
  Report Type: Spontaneous
  Country: US (occurrence: None)
  Receive Date: 20160401
  Receipt Date: 20160401
  Transmission Date: 20160815
  Serious: Yes (Other)
  Sender: FDA-Public Use
  Company Number: None

PATIENT
  Age: 48 Year
  Sex: Female
  Weight: 81.65 kg

DRUGS (10)
  1. LATUDA [Suspect]
     Active Substance: LURASIDONE HYDROCHLORIDE
     Indication: DEPRESSION
     Route: 048
     Dates: start: 20160301
  2. XANEX [Concomitant]
  3. NEPHRIDE [Concomitant]
  4. OEMPERZOLE [Concomitant]
  5. TYLENOL [Concomitant]
     Active Substance: ACETAMINOPHEN
  6. BLOOD SUGAR [Concomitant]
  7. SIMVASTATIN. [Concomitant]
     Active Substance: SIMVASTATIN
  8. LATUDA [Concomitant]
     Active Substance: LURASIDONE HYDROCHLORIDE
  9. GLUCOSE MACHINE [Concomitant]
  10. LOBATERAL [Concomitant]

REACTIONS (11)
  - Tremor [None]
  - Feeling abnormal [None]
  - Seizure [None]
  - Tinnitus [None]
  - Eye pain [None]
  - Dizziness [None]
  - Photophobia [None]
  - Fatigue [None]
  - Hyperacusis [None]
  - Insomnia [None]
  - Muscle twitching [None]

NARRATIVE: CASE EVENT DATE: 20160324
